FAERS Safety Report 22133373 (Version 1)
Quarter: 2023Q1

REPORT INFORMATION
  Report Type: Spontaneous
  Country: CN (occurrence: CN)
  Receive Date: 20230324
  Receipt Date: 20230324
  Transmission Date: 20230418
  Serious: Yes (Hospitalization, Other)
  Sender: FDA-Public Use
  Company Number: None

PATIENT
  Age: 54 Year
  Sex: Male
  Weight: 62.5 kg

DRUGS (20)
  1. CYCLOPHOSPHAMIDE [Suspect]
     Active Substance: CYCLOPHOSPHAMIDE
     Indication: Peripheral T-cell lymphoma unspecified
     Dosage: 1.2 G, ONCE DAILY, D1, AS PART OF FIRST CVDLP REGIMEN INDUCTION THERAPY
     Route: 041
     Dates: start: 20230209, end: 20230209
  2. CYCLOPHOSPHAMIDE [Suspect]
     Active Substance: CYCLOPHOSPHAMIDE
     Indication: Lymphadenopathy
  3. CYCLOPHOSPHAMIDE [Suspect]
     Active Substance: CYCLOPHOSPHAMIDE
     Indication: T-cell type acute leukaemia
  4. CYCLOPHOSPHAMIDE [Suspect]
     Active Substance: CYCLOPHOSPHAMIDE
     Indication: Chemotherapy
  5. PEGASPARGASE [Suspect]
     Active Substance: PEGASPARGASE
     Indication: Peripheral T-cell lymphoma unspecified
     Dosage: 3750 IU, ONCE DAILY, D1, AS PART OF FIRST CVDLP REGIMEN INDUCTION THERAPY
     Route: 030
     Dates: start: 20230209, end: 20230209
  6. PEGASPARGASE [Suspect]
     Active Substance: PEGASPARGASE
     Indication: Lymphadenopathy
  7. PEGASPARGASE [Suspect]
     Active Substance: PEGASPARGASE
     Indication: T-cell type acute leukaemia
  8. PEGASPARGASE [Suspect]
     Active Substance: PEGASPARGASE
     Indication: Chemotherapy
  9. DAUNORUBICIN HYDROCHLORIDE [Suspect]
     Active Substance: DAUNORUBICIN HYDROCHLORIDE
     Indication: Peripheral T-cell lymphoma unspecified
     Dosage: 60 MG, ONCE DAILY, D1, AS PART OF FIRST CVDLP REGIMEN INDUCTION THERAPY
     Route: 041
     Dates: start: 20230209, end: 20230209
  10. DAUNORUBICIN HYDROCHLORIDE [Suspect]
     Active Substance: DAUNORUBICIN HYDROCHLORIDE
     Indication: Lymphadenopathy
  11. DAUNORUBICIN HYDROCHLORIDE [Suspect]
     Active Substance: DAUNORUBICIN HYDROCHLORIDE
     Indication: T-cell type acute leukaemia
  12. DAUNORUBICIN HYDROCHLORIDE [Suspect]
     Active Substance: DAUNORUBICIN HYDROCHLORIDE
     Indication: Chemotherapy
  13. VINCRISTINE SULFATE [Suspect]
     Active Substance: VINCRISTINE SULFATE
     Indication: Peripheral T-cell lymphoma unspecified
     Dosage: 1.2 G, ONCE DAILY, D1, AS PART OF FIRST CVDLP REGIMEN INDUCTION THERAPY
     Route: 041
     Dates: start: 20230209, end: 20230209
  14. VINCRISTINE SULFATE [Suspect]
     Active Substance: VINCRISTINE SULFATE
     Indication: Lymphadenopathy
  15. VINCRISTINE SULFATE [Suspect]
     Active Substance: VINCRISTINE SULFATE
     Indication: T-cell type acute leukaemia
  16. VINCRISTINE SULFATE [Suspect]
     Active Substance: VINCRISTINE SULFATE
     Indication: Chemotherapy
  17. PREDNISONE [Suspect]
     Active Substance: PREDNISONE
     Indication: Peripheral T-cell lymphoma unspecified
     Dosage: UNK, AS PART OF FIRST CVDLP REGIMEN INDUCTION THERAPY
     Route: 065
     Dates: start: 20230209
  18. PREDNISONE [Suspect]
     Active Substance: PREDNISONE
     Indication: Lymphadenopathy
  19. PREDNISONE [Suspect]
     Active Substance: PREDNISONE
     Indication: T-cell type acute leukaemia
  20. PREDNISONE [Suspect]
     Active Substance: PREDNISONE
     Indication: Chemotherapy

REACTIONS (7)
  - Hypoproteinaemia [Recovering/Resolving]
  - Nausea [Recovering/Resolving]
  - Vomiting [Recovering/Resolving]
  - Myelosuppression [Recovering/Resolving]
  - Scleral haemorrhage [Unknown]
  - Hypofibrinogenaemia [Unknown]
  - Discomfort [Recovered/Resolved]

NARRATIVE: CASE EVENT DATE: 20230210
